FAERS Safety Report 6336499-3 (Version None)
Quarter: 2009Q3

REPORT INFORMATION
  Report Type: 
  Country: None (occurrence: None)
  Receive Date: 20090901
  Receipt Date: 20090824
  Transmission Date: 20100115
  Serious: Yes (Disabling, Other)
  Sender: FDA-Public Use
  Company Number: US-BAYER-200913294BCC

PATIENT
  Age: 48 Year
  Sex: Male

DRUGS (14)
  1. ASPIRIN [Suspect]
     Indication: CORONARY ARTERY BYPASS
     Dosage: TOTAL DAILY DOSE: 81 MG  UNIT DOSE: 81 MG
     Route: 048
     Dates: start: 20080301, end: 20090301
  2. ASPIRIN [Suspect]
     Dosage: UNIT DOSE: 81 MG
     Route: 048
     Dates: start: 20090301
  3. CLOPIDOGREL [Suspect]
     Indication: CORONARY ARTERY BYPASS
     Dosage: TOTAL DAILY DOSE: 75 MG  UNIT DOSE: 75 MG
     Route: 048
     Dates: start: 20080301, end: 20090301
  4. CLOPIDOGREL [Suspect]
     Dosage: TOTAL DAILY DOSE: 150 MG  UNIT DOSE: 75 MG
     Route: 048
     Dates: start: 20090301, end: 20090101
  5. CLOPIDOGREL [Suspect]
     Dosage: TOTAL DAILY DOSE: 75 MG  UNIT DOSE: 75 MG
     Route: 048
     Dates: start: 20090101, end: 20090813
  6. EZETIMIBE [Concomitant]
     Route: 065
  7. METOPROLOL [Concomitant]
     Route: 065
  8. OMEPRAZOL [Concomitant]
     Indication: GASTROINTESTINAL PAIN
     Route: 065
  9. RANITIDINE [Concomitant]
     Indication: GASTROINTESTINAL PAIN
     Route: 065
  10. LISINOPRIL [Concomitant]
     Route: 065
  11. PARACETAMOL [Concomitant]
     Indication: ARTHRALGIA
     Route: 065
  12. TRAMADOL HCL [Concomitant]
     Indication: ARTHRALGIA
     Dosage: TOOK AT NIGHT
     Route: 065
  13. ACETAMINOPHEN AND HYDROCODONE BITARTRATE [Concomitant]
     Indication: ARTHRALGIA
     Route: 065
  14. ACETAMINOPHEN [Concomitant]
     Indication: PAIN
     Route: 065

REACTIONS (12)
  - ANTI-CYCLIC CITRULLINATED PEPTIDE ANTIBODY POSITIVE [None]
  - ANTINUCLEAR ANTIBODY POSITIVE [None]
  - ARTHRALGIA [None]
  - BLOOD IMMUNOGLOBULIN G INCREASED [None]
  - C-REACTIVE PROTEIN INCREASED [None]
  - CHEST PAIN [None]
  - DISABILITY [None]
  - MALAISE [None]
  - MYOCARDIAL INFARCTION [None]
  - RHEUMATOID ARTHRITIS [None]
  - THROMBOSIS [None]
  - VASCULAR OCCLUSION [None]
